FAERS Safety Report 15500503 (Version 2)
Quarter: 2018Q4

REPORT INFORMATION
  Report Type: Report from Study
  Country: US (occurrence: US)
  Receive Date: 20181015
  Receipt Date: 20181227
  Transmission Date: 20190205
  Serious: Yes (Hospitalization)
  Sender: FDA-Public Use
  Company Number: PHEH2018US042778

PATIENT
  Sex: Male

DRUGS (2)
  1. ENTRESTO [Suspect]
     Active Substance: SACUBITRIL\VALSARTAN
     Indication: CARDIAC FAILURE
     Dosage: 1 DF, QD
     Route: 048
  2. ENTRESTO [Suspect]
     Active Substance: SACUBITRIL\VALSARTAN
     Dosage: 0.5 DF (1/2 A PILL IN THE AM AND 1/2 A PILL IN THE PM), BID
     Route: 048

REACTIONS (7)
  - Inappropriate schedule of product administration [Unknown]
  - Product prescribing error [Unknown]
  - Dizziness [Unknown]
  - Blood pressure decreased [Unknown]
  - Photophobia [Unknown]
  - Wrong technique in product usage process [Unknown]
  - Fluid retention [Unknown]
